FAERS Safety Report 24713596 (Version 1)
Quarter: 2024Q4

REPORT INFORMATION
  Report Type: Spontaneous
  Country: US (occurrence: US)
  Receive Date: 20241209
  Receipt Date: 20241209
  Transmission Date: 20250114
  Serious: No
  Sender: SANOFI AVENTIS
  Company Number: US-SA-2024SA276891

PATIENT
  Age: 64 Year
  Sex: Female

DRUGS (2)
  1. DUPIXENT [Suspect]
     Active Substance: DUPILUMAB
     Indication: Dermatitis atopic
     Dosage: 600 MG, 1X
     Route: 058
     Dates: start: 202302, end: 202302
  2. DUPIXENT [Suspect]
     Active Substance: DUPILUMAB
     Dosage: 300 MG, QOW
     Route: 058
     Dates: start: 202408, end: 2024

REACTIONS (12)
  - Eye discharge [Unknown]
  - Swelling face [Recovering/Resolving]
  - Eczema [Not Recovered/Not Resolved]
  - Eye movement disorder [Unknown]
  - Ocular hyperaemia [Unknown]
  - Dry eye [Not Recovered/Not Resolved]
  - Eye swelling [Unknown]
  - Eye irritation [Unknown]
  - Eye pruritus [Unknown]
  - Conjunctivitis [Unknown]
  - Erythema [Recovering/Resolving]
  - Swelling of eyelid [Unknown]

NARRATIVE: CASE EVENT DATE: 20230101
